FAERS Safety Report 7818506-1 (Version None)
Quarter: 2011Q4

REPORT INFORMATION
  Report Type: 
  Country: None (occurrence: None)
  Receive Date: 20111017
  Receipt Date: 20111007
  Transmission Date: 20120403
  Serious: Yes (Hospitalization, Other)
  Sender: FDA-Public Use
  Company Number: US-RB-032753-11

PATIENT
  Age: 26 Year
  Sex: Male

DRUGS (1)
  1. SUBOXONE [Suspect]
     Indication: DRUG DEPENDENCE
     Route: 060
     Dates: end: 20111007

REACTIONS (2)
  - PAIN [None]
  - APPENDICITIS PERFORATED [None]
